FAERS Safety Report 8975868 (Version 1)
Quarter: 2012Q4

REPORT INFORMATION
  Report Type: 
  Country: US (occurrence: US)
  Receive Date: 20121219
  Receipt Date: 20121219
  Transmission Date: 20130627
  Serious: No
  Sender: FDA-Public Use
  Company Number: US-AMGEN-USASP2012068628

PATIENT
  Age: 45 Year
  Sex: Female

DRUGS (3)
  1. XGEVA [Suspect]
     Indication: METASTASES TO BONE
     Dosage: 120 mg, UNK
     Dates: start: 20120926
  2. CALCIUM [Concomitant]
     Dosage: 500 mg, qd
  3. VITAMIN D /00107901/ [Concomitant]
     Dosage: 400 IU, qd

REACTIONS (1)
  - Blood calcium abnormal [Not Recovered/Not Resolved]
